FAERS Safety Report 6449829-9 (Version None)
Quarter: 2009Q4

REPORT INFORMATION
  Report Type: 
  Country: None (occurrence: None)
  Receive Date: 20091120
  Receipt Date: 20091110
  Transmission Date: 20100525
  Serious: Yes (Other)
  Sender: FDA-Public Use
  Company Number: DE-GENENTECH-294525

PATIENT
  Sex: Female

DRUGS (2)
  1. MABTHERA [Suspect]
     Indication: B-CELL LYMPHOMA
     Dosage: UNK
     Route: 042
  2. CHOP REGIMEN [Concomitant]
     Indication: B-CELL LYMPHOMA
     Dosage: UNK

REACTIONS (1)
  - CAPILLARY LEAK SYNDROME [None]
